FAERS Safety Report 14573078 (Version 1)
Quarter: 2018Q1

REPORT INFORMATION
  Report Type: Spontaneous
  Country: US (occurrence: US)
  Receive Date: 20180226
  Receipt Date: 20180226
  Transmission Date: 20180509
  Serious: No
  Sender: FDA-Public Use
  Company Number: US-ARBOR PHARMACEUTICALS, LLC-US-2018ARB000041

PATIENT

DRUGS (1)
  1. OTOVEL [Suspect]
     Active Substance: CIPROFLOXACIN\FLUOCINOLONE ACETONIDE
     Indication: EAR INFECTION
     Dosage: 1 GTT, QID

REACTIONS (2)
  - Drug administered to patient of inappropriate age [Unknown]
  - Drug prescribing error [Unknown]
